FAERS Safety Report 14159681 (Version 1)
Quarter: 2017Q4

REPORT INFORMATION
  Report Type: Spontaneous
  Country: US (occurrence: US)
  Receive Date: 20171106
  Receipt Date: 20171106
  Transmission Date: 20180321
  Serious: No
  Sender: FDA-Public Use
  Company Number: US-PFIZER INC-2017474288

PATIENT
  Age: 84 Year
  Sex: Female

DRUGS (6)
  1. ESTRING [Suspect]
     Active Substance: ESTRADIOL
     Indication: HOT FLUSH
     Dosage: UNK
  2. ESTRING [Suspect]
     Active Substance: ESTRADIOL
     Indication: NIGHT SWEATS
  3. VITAMIN B12 [Suspect]
     Active Substance: CYANOCOBALAMIN
     Indication: HOT FLUSH
     Dosage: UNK
  4. VITAMIN B12 [Suspect]
     Active Substance: CYANOCOBALAMIN
     Indication: NIGHT SWEATS
  5. VITAMIN B12 [Suspect]
     Active Substance: CYANOCOBALAMIN
     Indication: VAGINAL DISCHARGE
  6. ESTRING [Suspect]
     Active Substance: ESTRADIOL
     Indication: VAGINAL DISCHARGE

REACTIONS (1)
  - Drug ineffective for unapproved indication [Unknown]
